FAERS Safety Report 5991646-8 (Version None)
Quarter: 2008Q4

REPORT INFORMATION
  Report Type: 
  Country: None (occurrence: None)
  Receive Date: 20081211
  Receipt Date: 20081205
  Transmission Date: 20090506
  Serious: Yes (Other)
  Sender: FDA-Public Use
  Company Number: US-PFIZER INC-2008150838

PATIENT
  Sex: Female

DRUGS (4)
  1. BEXTRA [Suspect]
     Indication: BACK PAIN
     Dates: start: 20020101, end: 20020101
  2. BEXTRA [Suspect]
     Indication: ARTHRALGIA
  3. BEXTRA [Suspect]
  4. ALL OTHER THERAPEUTIC PRODUCTS [Concomitant]

REACTIONS (6)
  - ARTHRALGIA [None]
  - ARTHRITIS [None]
  - BACK PAIN [None]
  - KNEE ARTHROPLASTY [None]
  - KNEE OPERATION [None]
  - OSTEOARTHRITIS [None]
